FAERS Safety Report 6209238-4 (Version None)
Quarter: 2009Q2

REPORT INFORMATION
  Report Type: 
  Country: None (occurrence: None)
  Receive Date: 20090529
  Receipt Date: 20090522
  Transmission Date: 20091009
  Serious: Yes (Other)
  Sender: FDA-Public Use
  Company Number: PHHY2009BR20357

PATIENT
  Sex: Female

DRUGS (3)
  1. TEGRETOL [Suspect]
     Indication: CONVULSION PROPHYLAXIS
     Dosage: 10 ML, TID
     Route: 048
     Dates: end: 20090301
  2. TRILEPTAL [Suspect]
     Indication: PETIT MAL EPILEPSY
     Dosage: 5 ML BID: MORNING AND NIGHT
     Route: 048
     Dates: start: 20090301
  3. TRILEPTAL [Suspect]
     Dosage: 7.5 ML BID : IN THE MORNING AND AT NIGHT
     Route: 048
     Dates: start: 20090523

REACTIONS (4)
  - ABDOMINAL PAIN UPPER [None]
  - ANXIETY [None]
  - PETIT MAL EPILEPSY [None]
  - SOMNOLENCE [None]
